FAERS Safety Report 19059888 (Version 9)
Quarter: 2021Q4

REPORT INFORMATION
  Report Type: Report from Study
  Country: US (occurrence: US)
  Receive Date: 20210326
  Receipt Date: 20211225
  Transmission Date: 20220304
  Serious: Yes (Other)
  Sender: FDA-Public Use
  Company Number: US-NOVARTISPH-NVSC2021US060978

PATIENT
  Sex: Female

DRUGS (2)
  1. ZARXIO [Suspect]
     Active Substance: FILGRASTIM-SNDZ
     Indication: Product used for unknown indication
     Dosage: 480 MCG/ML (480/ 0.8 MCG/ML (1 SYRINGE)
     Route: 065
  2. ZARXIO [Suspect]
     Active Substance: FILGRASTIM-SNDZ
     Dosage: 0.5 ML, QD (300 MCG/0.5ML IV, 10 SYRINGES)
     Route: 058

REACTIONS (14)
  - Neoplasm malignant [Unknown]
  - Condition aggravated [Unknown]
  - Osteomyelitis [Unknown]
  - Full blood count decreased [Unknown]
  - Illness [Unknown]
  - Weight decreased [Unknown]
  - Eating disorder [Unknown]
  - Immune system disorder [Unknown]
  - Blister [Unknown]
  - Memory impairment [Unknown]
  - Bone cyst [Unknown]
  - White blood cell count decreased [Not Recovered/Not Resolved]
  - Fatigue [Unknown]
  - Diarrhoea [Unknown]
